FAERS Safety Report 8984956 (Version 2)
Quarter: 2013Q1

REPORT INFORMATION
  Report Type: Spontaneous
  Country: IT (occurrence: IT)
  Receive Date: 20121226
  Receipt Date: 20130110
  Transmission Date: 20140127
  Serious: Yes (Hospitalization)
  Sender: FDA-Public Use
  Company Number: PHHY2012IT118492

PATIENT
  Sex: Female

DRUGS (6)
  1. TEGRETOL [Suspect]
     Dosage: 10 DF, UNK
     Route: 048
     Dates: start: 20121211, end: 20121211
  2. TRITTICO [Suspect]
     Dosage: 10 DF, UNK
     Route: 048
     Dates: start: 20121211, end: 20121211
  3. DULCOLAX [Suspect]
     Dosage: 5 DF, UNK
     Route: 048
     Dates: start: 20121211, end: 20121211
  4. RIVOTRIL [Suspect]
     Dosage: 10 DF, UNK
     Route: 048
     Dates: start: 20121211, end: 20121211
  5. ZYPREXA [Suspect]
     Dosage: 2 DF, UNK
     Route: 048
     Dates: start: 20121211, end: 20121211
  6. CIPRALEX [Suspect]
     Dosage: 10 DF, UNK
     Route: 048
     Dates: start: 20121211, end: 20121211

REACTIONS (2)
  - Self injurious behaviour [Unknown]
  - Drug abuse [Unknown]
